FAERS Safety Report 19063736 (Version 1)
Quarter: 2021Q1

REPORT INFORMATION
  Report Type: Spontaneous
  Country: US (occurrence: US)
  Receive Date: 20210326
  Receipt Date: 20210326
  Transmission Date: 20210420
  Serious: No
  Sender: FDA-Public Use
  Company Number: US-GW PHARMA-202103USGW01265

PATIENT

DRUGS (1)
  1. EPIDIOLEX [Suspect]
     Active Substance: CANNABIDIOL
     Indication: LENNOX-GASTAUT SYNDROME
     Dosage: 570 MILLIGRAM, BID
     Route: 048
     Dates: start: 20210223

REACTIONS (3)
  - Muscular weakness [Unknown]
  - Mobility decreased [Unknown]
  - Fall [Unknown]
